FAERS Safety Report 8925730 (Version 2)
Quarter: 2013Q1

REPORT INFORMATION
  Report Type: Spontaneous
  Country: AU (occurrence: AU)
  Receive Date: 20121126
  Receipt Date: 20130118
  Transmission Date: 20140127
  Serious: Yes (Other)
  Sender: FDA-Public Use
  Company Number: AU-ASTRAZENECA-2012SE86863

PATIENT
  Age: 62 Year
  Sex: Male

DRUGS (5)
  1. BRILINTA [Suspect]
     Route: 048
     Dates: start: 20121109, end: 20121111
  2. REOPRO [Suspect]
     Indication: ACUTE MYOCARDIAL INFARCTION
     Route: 042
     Dates: start: 20121108
  3. CRESTOR [Concomitant]
     Indication: MYOCARDIAL ISCHAEMIA
  4. RAMIPRIL [Concomitant]
     Indication: MYOCARDIAL ISCHAEMIA
  5. MESALAZINE [Concomitant]
     Indication: CROHN^S DISEASE
     Route: 048

REACTIONS (3)
  - Loss of consciousness [Recovered/Resolved]
  - Melaena [Recovered/Resolved]
  - Lower gastrointestinal haemorrhage [Unknown]
